FAERS Safety Report 18584803 (Version 4)
Quarter: 2021Q1

REPORT INFORMATION
  Report Type: Report from Study
  Country: US (occurrence: US)
  Receive Date: 20201207
  Receipt Date: 20210329
  Transmission Date: 20210419
  Serious: No
  Sender: FDA-Public Use
  Company Number: NVSC2020US319703

PATIENT
  Age: 51 Year
  Sex: Female

DRUGS (2)
  1. COSENTYX [Suspect]
     Active Substance: SECUKINUMAB
     Indication: PSORIATIC ARTHROPATHY
     Dosage: 300 MG, Q 4 WEEKS, BENEATH THE SKIN
     Route: 058
  2. COSENTYX [Suspect]
     Active Substance: SECUKINUMAB
     Indication: PROSTATIC SPECIFIC ANTIGEN

REACTIONS (7)
  - General physical health deterioration [Unknown]
  - Osteoarthritis [Unknown]
  - Carpal tunnel syndrome [Unknown]
  - Hypersensitivity [Unknown]
  - Gastrooesophageal reflux disease [Unknown]
  - Dry mouth [Unknown]
  - Inappropriate schedule of product administration [Unknown]
